FAERS Safety Report 7554860-6 (Version None)
Quarter: 2011Q2

REPORT INFORMATION
  Report Type: 
  Country: None (occurrence: None)
  Receive Date: 20110617
  Receipt Date: 20110615
  Transmission Date: 20111010
  Serious: Yes (Disabling)
  Sender: FDA-Public Use
  Company Number: US-ROXANE LABORATORIES, INC.-2011-RO-00112RO

PATIENT
  Sex: Female

DRUGS (5)
  1. PREDNISONE [Suspect]
     Indication: TEMPORAL ARTERITIS
     Dosage: 9 MG
     Route: 048
  2. PREDNISONE [Suspect]
     Dosage: 7 MG
     Route: 048
     Dates: start: 20110301
  3. PREDNISONE [Suspect]
     Route: 048
  4. XANAX [Concomitant]
     Indication: ANXIETY
  5. PREDNISONE [Suspect]
     Route: 048
     Dates: start: 20100609

REACTIONS (8)
  - ALOPECIA [None]
  - BLINDNESS [None]
  - ONYCHOMADESIS [None]
  - DYSURIA [None]
  - ASTHENIA [None]
  - WEIGHT INCREASED [None]
  - ABDOMINAL DISCOMFORT [None]
  - PAIN [None]
